FAERS Safety Report 14564719 (Version 1)
Quarter: 2018Q1

REPORT INFORMATION
  Report Type: Report from Study
  Country: None (occurrence: NL)
  Receive Date: 20180222
  Receipt Date: 20180222
  Transmission Date: 20180509
  Serious: Yes (Other)
  Sender: FDA-Public Use
  Company Number: NL-ABBVIE-17K-114-2181365-00

PATIENT
  Age: 81 Year
  Sex: Female
  Weight: 62 kg

DRUGS (4)
  1. NEUPRO [Concomitant]
     Active Substance: ROTIGOTINE
     Indication: PRODUCT USED FOR UNKNOWN INDICATION
  2. ROTIGOTINE [Concomitant]
     Active Substance: ROTIGOTINE
     Indication: PRODUCT USED FOR UNKNOWN INDICATION
     Dosage: 14MG/24HR
     Route: 062
     Dates: start: 20171129
  3. SINEMET [Concomitant]
     Active Substance: CARBIDOPA\LEVODOPA
     Indication: PARKINSON^S DISEASE
     Route: 048
     Dates: start: 20120621
  4. DUODOPA [Suspect]
     Active Substance: CARBIDOPA\LEVODOPA
     Indication: PARKINSON^S DISEASE
     Dosage: MD 11, CD 1.8, ED 2
     Route: 050
     Dates: start: 20171120

REACTIONS (7)
  - Peritonitis [Recovering/Resolving]
  - Pneumoperitoneum [Recovered/Resolved]
  - Drug effect incomplete [Not Recovered/Not Resolved]
  - Urinary tract infection [Unknown]
  - Pneumoperitoneum [Unknown]
  - Gastric dilatation [Unknown]
  - Terminal insomnia [Not Recovered/Not Resolved]

NARRATIVE: CASE EVENT DATE: 2017
